FAERS Safety Report 7937774-9 (Version None)
Quarter: 2011Q4

REPORT INFORMATION
  Report Type: 
  Country: None (occurrence: None)
  Receive Date: 20111123
  Receipt Date: 20111109
  Transmission Date: 20120403
  Serious: Yes (Hospitalization)
  Sender: FDA-Public Use
  Company Number: PHHO2008ES11839

PATIENT
  Sex: Male
  Weight: 29 kg

DRUGS (1)
  1. ILARIS [Suspect]
     Indication: MUCKLE-WELLS SYNDROME
     Dosage: 58 MG, QD
     Route: 058
     Dates: start: 20080729

REACTIONS (8)
  - IMMUNE SYSTEM DISORDER [None]
  - ABDOMINAL ABSCESS [None]
  - C-REACTIVE PROTEIN INCREASED [None]
  - APPENDICITIS [None]
  - DISEASE COMPLICATION [None]
  - PYREXIA [None]
  - ABDOMINAL PAIN [None]
  - VOMITING [None]
